FAERS Safety Report 4835573-8 (Version None)
Quarter: 2005Q4

REPORT INFORMATION
  Report Type: 
  Country: None (occurrence: None)
  Receive Date: 20051121
  Receipt Date: 20051108
  Transmission Date: 20060501
  Serious: Yes (Other)
  Sender: FDA-Public Use
  Company Number: B0399796A

PATIENT
  Age: 37 Year
  Sex: Female

DRUGS (4)
  1. ZOFRAN [Suspect]
     Dosage: 4 MG INTRAVENOUS
     Route: 042
  2. METOCLOPRAMIDE [Suspect]
     Dosage: 10 MG
  3. LIGNOCAINE HYDROCHLORIDE [Concomitant]
     Dosage: 10 MG
  4. LIGNOCAINE HYDROCHLORIDE [Concomitant]

REACTIONS (9)
  - COMMUNICATION DISORDER [None]
  - CONFUSIONAL STATE [None]
  - DYSKINESIA [None]
  - DYSTONIA [None]
  - EXTRAPYRAMIDAL DISORDER [None]
  - NEUROLOGICAL SYMPTOM [None]
  - PERITONEAL HAEMORRHAGE [None]
  - SACCADIC EYE MOVEMENT [None]
  - SOMNOLENCE [None]
